FAERS Safety Report 4751417-7 (Version None)
Quarter: 2005Q3

REPORT INFORMATION
  Report Type: 
  Country: None (occurrence: None)
  Receive Date: 20050824
  Receipt Date: 20040127
  Transmission Date: 20060218
  Serious: Yes (Hospitalization)
  Sender: FDA-Public Use
  Company Number: 200410240JP

PATIENT
  Age: 68 Year
  Sex: Female
  Weight: 52.7 kg

DRUGS (14)
  1. ARAVA [Suspect]
     Indication: RHEUMATOID ARTHRITIS
     Route: 048
     Dates: start: 20031031, end: 20040130
  2. PREDNISOLONE [Concomitant]
     Indication: RHEUMATOID ARTHRITIS
     Route: 048
     Dates: start: 20031121, end: 20031120
  3. GLAKAY [Concomitant]
     Indication: OSTEOPOROSIS
     Route: 048
  4. ALLOPURINOL [Concomitant]
     Indication: BLOOD URIC ACID INCREASED
     Route: 048
  5. LENDORMIN [Concomitant]
     Indication: INSOMNIA
     Route: 048
  6. TAKEPRON [Concomitant]
     Indication: REFLUX OESOPHAGITIS
     Route: 048
     Dates: start: 20031225, end: 20040130
  7. MEVALOTIN [Concomitant]
     Indication: HYPERLIPIDAEMIA
     Route: 048
  8. BENET [Concomitant]
     Indication: OSTEOPOROSIS
     Route: 048
  9. OMEPRAZOLE [Concomitant]
     Indication: REFLUX OESOPHAGITIS
     Route: 048
     Dates: start: 20040131
  10. ARTIST [Concomitant]
     Indication: CARDIAC FAILURE
     Route: 048
     Dates: start: 20031228
  11. TORSEMIDE [Concomitant]
     Indication: CARDIAC FAILURE
     Route: 048
     Dates: start: 20031228
  12. CONIEL [Concomitant]
     Indication: HYPERTENSION
     Route: 048
     Dates: start: 20031029, end: 20031227
  13. CARDENALIN [Concomitant]
     Indication: HYPERTENSION
     Route: 048
     Dates: start: 20031029, end: 20031120
  14. METHOTREXATE [Concomitant]
     Dates: start: 20030418, end: 20030424

REACTIONS (13)
  - BLOOD ALBUMIN DECREASED [None]
  - BLOOD CHOLESTEROL INCREASED [None]
  - BLOOD PRESSURE FLUCTUATION [None]
  - BRAIN NATRIURETIC PEPTIDE INCREASED [None]
  - CARDIAC FAILURE [None]
  - HAEMOGLOBIN DECREASED [None]
  - HEPATIC CONGESTION [None]
  - INFECTION [None]
  - NASOPHARYNGITIS [None]
  - PALPITATIONS [None]
  - PROTEIN TOTAL DECREASED [None]
  - RESPIRATORY TRACT INFECTION [None]
  - VENTRICULAR HYPOKINESIA [None]
